FAERS Safety Report 9356077 (Version 1)
Quarter: 2013Q2

REPORT INFORMATION
  Report Type: Spontaneous
  Country: GB (occurrence: GB)
  Receive Date: 20130619
  Receipt Date: 20130619
  Transmission Date: 20140414
  Serious: Yes (Other)
  Sender: FDA-Public Use
  Company Number: GB-TEVA-412953ISR

PATIENT
  Sex: Female

DRUGS (6)
  1. AMLODIPINE [Suspect]
     Indication: HYPERTENSION
  2. BENDROFLUMETHIAZIDE [Interacting]
     Indication: HYPERTENSION
  3. AZITHROMYCIN [Interacting]
  4. SALBUTAMOL [Interacting]
  5. DOXYCYCLINE [Interacting]
  6. CARBOCISTEINE [Interacting]

REACTIONS (3)
  - Bronchiectasis [Unknown]
  - Drug interaction [Unknown]
  - Condition aggravated [Unknown]
